FAERS Safety Report 23165519 (Version 2)
Quarter: 2023Q4

REPORT INFORMATION
  Report Type: Report from Study
  Country: DE (occurrence: DE)
  Receive Date: 20231109
  Receipt Date: 20231110
  Transmission Date: 20240109
  Serious: Yes (Life-Threatening)
  Sender: FDA-Public Use
  Company Number: DE-ALXN-202311GLO000125DE

PATIENT
  Age: 62 Year
  Sex: Male
  Weight: 137 kg

DRUGS (2)
  1. RAVULIZUMAB [Suspect]
     Active Substance: RAVULIZUMAB
     Indication: Renal disorder prophylaxis
     Dosage: 720 MILLILITER
     Route: 042
     Dates: start: 20231031, end: 20231031
  2. PLACEBO [Suspect]
     Active Substance: UNSPECIFIED INGREDIENT
     Indication: Renal disorder prophylaxis
     Dosage: 720 MILLILITER
     Route: 042
     Dates: start: 20231031, end: 20231031

REACTIONS (1)
  - Bradycardia [Recovered/Resolved]

NARRATIVE: CASE EVENT DATE: 20231102
